FAERS Safety Report 7081103-2 (Version None)
Quarter: 2010Q4

REPORT INFORMATION
  Report Type: 
  Country: None (occurrence: None)
  Receive Date: 20101103
  Receipt Date: 20101026
  Transmission Date: 20110411
  Serious: Yes (Disabling, Other)
  Sender: FDA-Public Use
  Company Number: A0878444A

PATIENT
  Age: 39 Year
  Sex: Male
  Weight: 54.1 kg

DRUGS (5)
  1. EPZICOM [Suspect]
     Indication: HIV INFECTION
     Route: 048
     Dates: start: 20091217, end: 20100101
  2. LEXIVA [Concomitant]
     Indication: HIV INFECTION
     Dosage: 700MG TWICE PER DAY
     Route: 048
     Dates: start: 20060501
  3. RITONAVIR [Concomitant]
     Indication: HIV INFECTION
     Dosage: 100MG TWICE PER DAY
     Route: 048
     Dates: start: 20060501
  4. BACTRIM [Concomitant]
  5. LYRICA [Concomitant]
     Indication: NEUROPATHY PERIPHERAL
     Route: 048
     Dates: start: 20090101

REACTIONS (6)
  - ABDOMINAL PAIN [None]
  - ATRIAL FIBRILLATION [None]
  - DEHYDRATION [None]
  - GASTROENTERITIS CRYPTOSPORIDIAL [None]
  - LIPASE INCREASED [None]
  - PANCREATITIS [None]
